FAERS Safety Report 5269536-8 (Version None)
Quarter: 2007Q1

REPORT INFORMATION
  Report Type: 
  Country: None (occurrence: None)
  Receive Date: 20061213
  Receipt Date: 20030925
  Transmission Date: 20070707
  Serious: Yes (Other)
  Sender: FDA-Public Use
  Company Number: 2003UW13119

PATIENT
  Age: 82 Year
  Sex: Female

DRUGS (2)
  1. IRESSA [Suspect]
     Indication: NON-SMALL CELL LUNG CANCER
     Dates: start: 20030601
  2. IRESSA [Suspect]
     Indication: NON-SMALL CELL LUNG CANCER

REACTIONS (1)
  - ABDOMINAL PAIN UPPER [None]
